FAERS Safety Report 8235306-1 (Version None)
Quarter: 2012Q1

REPORT INFORMATION
  Report Type: 
  Country: None (occurrence: None)
  Receive Date: 20120326
  Receipt Date: 20120321
  Transmission Date: 20120608
  Serious: No
  Sender: FDA-Public Use
  Company Number: US-PFIZER INC-2012004716

PATIENT
  Sex: Male
  Weight: 77 kg

DRUGS (6)
  1. SUTENT [Suspect]
     Dosage: 25 MG, 1X/DAY
     Route: 048
     Dates: start: 20111117, end: 20111201
  2. ZOLPIDEM [Concomitant]
     Indication: SLEEP DISORDER
     Dosage: 10 MG, UNK
  3. SUTENT [Suspect]
     Dosage: 37.5 MG, 1X/DAY
     Route: 048
     Dates: start: 20111201, end: 20111201
  4. SUTENT [Suspect]
     Dosage: 25 MG, 1X/DAY
     Route: 048
     Dates: start: 20111201
  5. AMLODIPINE BESYLATE [Suspect]
     Indication: HYPERTENSION
     Dosage: UNK
     Dates: start: 20120201, end: 20120320
  6. SUTENT [Suspect]
     Indication: RENAL CELL CARCINOMA
     Dosage: UNK

REACTIONS (22)
  - RED CELL DISTRIBUTION WIDTH INCREASED [None]
  - LYMPHOCYTE COUNT DECREASED [None]
  - FEELING ABNORMAL [None]
  - HEADACHE [None]
  - PLATELET COUNT INCREASED [None]
  - HYPERTENSION [None]
  - DYSSTASIA [None]
  - EYE OEDEMA [None]
  - HAEMATOCRIT DECREASED [None]
  - FATIGUE [None]
  - OEDEMA PERIPHERAL [None]
  - MEAN PLATELET VOLUME DECREASED [None]
  - ASTHENIA [None]
  - BLOOD GLUCOSE INCREASED [None]
  - RHINORRHOEA [None]
  - EXERCISE TOLERANCE DECREASED [None]
  - COUGH [None]
  - BLOOD ALBUMIN DECREASED [None]
  - DYSGEUSIA [None]
  - HYPOTENSION [None]
  - RED BLOOD CELL COUNT DECREASED [None]
  - HAEMOGLOBIN DECREASED [None]
